FAERS Safety Report 18732193 (Version 1)
Quarter: 2021Q1

REPORT INFORMATION
  Report Type: Spontaneous
  Country: US (occurrence: US)
  Receive Date: 20210112
  Receipt Date: 20210112
  Transmission Date: 20210419
  Serious: Yes (Hospitalization)
  Sender: FDA-Public Use
  Company Number: US-CUMBERLAND-2021-US-000001

PATIENT
  Age: 49 Year
  Sex: Male

DRUGS (2)
  1. RITUXIMAB. [Suspect]
     Active Substance: RITUXIMAB
  2. REDITREX [Suspect]
     Active Substance: METHOTREXATE

REACTIONS (5)
  - Humoral immune defect [Unknown]
  - SARS-CoV-2 test positive [Recovered/Resolved]
  - Acute respiratory distress syndrome [Recovered/Resolved]
  - Diarrhoea [Recovered/Resolved]
  - Ileus [Recovered/Resolved]
